FAERS Safety Report 10730476 (Version 1)
Quarter: 2015Q1

REPORT INFORMATION
  Report Type: Spontaneous
  Country: US (occurrence: None)
  Receive Date: 20150121
  Receipt Date: 20150121
  Transmission Date: 20150721
  Serious: Yes (Other)
  Sender: FDA-Public Use
  Company Number: None

PATIENT
  Age: 55 Year
  Sex: Male
  Weight: 80.74 kg

DRUGS (1)
  1. PRISTIQ EXTENDED RELEASE [Suspect]
     Active Substance: DESVENLAFAXINE SUCCINATE
     Indication: DEPRESSION
     Dosage: 1 DAILY TAKEN BY MOUTH ONCE DAILY
     Route: 048
     Dates: start: 20150115, end: 20150120

REACTIONS (3)
  - Memory impairment [None]
  - Unevaluable event [None]
  - Speech disorder [None]

NARRATIVE: CASE EVENT DATE: 20150115
